FAERS Safety Report 23211448 (Version 1)
Quarter: 2023Q4

REPORT INFORMATION
  Report Type: Spontaneous
  Country: US (occurrence: US)
  Receive Date: 20231121
  Receipt Date: 20231121
  Transmission Date: 20240110
  Serious: No
  Sender: FDA-Public Use
  Company Number: US-TAKEDA-2023TUS109785

PATIENT
  Age: 1 Year
  Sex: Female
  Weight: 9 kg

DRUGS (8)
  1. CEPROTIN [Suspect]
     Active Substance: PROTEIN C
     Indication: Product used for unknown indication
     Dosage: 900 INTERNATIONAL UNIT, QD
     Route: 065
  2. RIVAROXABAN [Concomitant]
     Active Substance: RIVAROXABAN
  3. CLOBAZAM [Concomitant]
     Active Substance: CLOBAZAM
  4. ACETAMINOPHEN [Concomitant]
     Active Substance: ACETAMINOPHEN
  5. VIGABATRIN [Concomitant]
     Active Substance: VIGABATRIN
  6. GABAPENTIN [Concomitant]
     Active Substance: GABAPENTIN
  7. SODIUM CITRATE [Concomitant]
     Active Substance: SODIUM CITRATE
  8. CALCIUM [Concomitant]
     Active Substance: CALCIUM

REACTIONS (2)
  - Product storage error [Unknown]
  - No adverse event [Unknown]

NARRATIVE: CASE EVENT DATE: 20231109
